FAERS Safety Report 9525776 (Version 2)
Quarter: 2014Q2

REPORT INFORMATION
  Report Type: Report from Study
  Country: DE (occurrence: DE)
  Receive Date: 20130916
  Receipt Date: 20140415
  Transmission Date: 20141212
  Serious: Yes (Hospitalization)
  Sender: FDA-Public Use
  Company Number: DE-009507513-1309DEU005566

PATIENT
  Age: 44 Year
  Sex: Male

DRUGS (3)
  1. VICTRELIS [Suspect]
     Indication: CHRONIC HEPATITIS C
     Dosage: 200 MG, 4-4-4/D
     Route: 048
     Dates: start: 20130301
  2. PEGASYS [Suspect]
     Indication: CHRONIC HEPATITIS C
     Dosage: 180 MICROGRAM, QW
     Route: 058
     Dates: start: 20130201
  3. COPEGUS [Suspect]
     Indication: CHRONIC HEPATITIS C
     Dosage: 200 MG, 3-0-4/D
     Route: 048
     Dates: start: 20130201

REACTIONS (3)
  - Leukopenia [Recovered/Resolved]
  - Vomiting [Recovered/Resolved]
  - Diarrhoea [Recovered/Resolved]
